FAERS Safety Report 7860493-4 (Version None)
Quarter: 2011Q4

REPORT INFORMATION
  Report Type: 
  Country: None (occurrence: None)
  Receive Date: 20111027
  Receipt Date: 20111024
  Transmission Date: 20120403
  Serious: Yes (Death)
  Sender: FDA-Public Use
  Company Number: GR-B.I. PHARMACEUTICALS,INC./RIDGEFIELD-2011-DE-06021GB

PATIENT
  Age: 75 Year
  Sex: Female

DRUGS (3)
  1. LOPRESSOR [Concomitant]
     Indication: HYPERTENSION
     Dates: end: 20110901
  2. PRADAXA [Suspect]
     Indication: ATRIAL FIBRILLATION
     Dosage: 220 MG
     Route: 048
     Dates: start: 20110801
  3. SINTROM [Concomitant]
     Indication: ATRIAL FIBRILLATION
     Dates: end: 20110801

REACTIONS (1)
  - CEREBRAL HAEMORRHAGE [None]
